FAERS Safety Report 14006445 (Version 1)
Quarter: 2017Q3

REPORT INFORMATION
  Report Type: Spontaneous
  Country: US (occurrence: US)
  Receive Date: 20170925
  Receipt Date: 20170925
  Transmission Date: 20171128
  Serious: Yes (Death, Hospitalization, Other)
  Sender: FDA-Public Use
  Company Number: US-BEH-2017083683

PATIENT
  Age: 65 Year
  Sex: Male

DRUGS (19)
  1. VITAMIN D3 [Concomitant]
     Active Substance: CHOLECALCIFEROL
  2. PREDNISONE. [Concomitant]
     Active Substance: PREDNISONE
  3. POTASSIUM [Concomitant]
     Active Substance: POTASSIUM
  4. ZEMAIRA [Suspect]
     Active Substance: .ALPHA.1-PROTEINASE INHIBITOR HUMAN
     Indication: ALPHA-1 ANTI-TRYPSIN DEFICIENCY
     Dosage: 60 MG/KG, QW
     Route: 042
     Dates: start: 20040309
  5. BICALUTAMIDE. [Concomitant]
     Active Substance: BICALUTAMIDE
  6. PANTOPRAZOLE [Concomitant]
     Active Substance: PANTOPRAZOLE
  7. MAGNESIUM [Concomitant]
     Active Substance: MAGNESIUM
  8. BROVANA [Concomitant]
     Active Substance: ARFORMOTEROL TARTRATE
  9. ELIGARD [Concomitant]
     Active Substance: LEUPROLIDE ACETATE
  10. UMECLIDINIUM [Concomitant]
     Active Substance: UMECLIDINIUM BROMIDE
  11. COZAAR [Concomitant]
     Active Substance: LOSARTAN POTASSIUM
  12. SUPER B COMPLEX                    /01995301/ [Concomitant]
     Active Substance: CYANOCOBALAMIN\DEXPANTHENOL\NIACINAMIDE\PYRIDOXINE HYDROCHLORIDE\RIBOFLAVIN 5^-PHOSPHATE SODIUM\THIAMINE HYDROCHLORIDE\VITAMIN B COMPLEX
  13. VENTOLIN [Concomitant]
     Active Substance: ALBUTEROL SULFATE
  14. BUDESONIDE. [Concomitant]
     Active Substance: BUDESONIDE
  15. IRON [Concomitant]
     Active Substance: IRON
  16. ZEMAIRA [Suspect]
     Active Substance: .ALPHA.1-PROTEINASE INHIBITOR HUMAN
     Dosage: UNK MG/KG, UNK
     Route: 042
  17. CALCIUM [Concomitant]
     Active Substance: CALCIUM
  18. LEXAPRO [Concomitant]
     Active Substance: ESCITALOPRAM OXALATE
  19. JANTOVEN [Concomitant]
     Active Substance: WARFARIN SODIUM

REACTIONS (4)
  - Pneumonia [Unknown]
  - Staphylococcal infection [Unknown]
  - Death [Fatal]
  - Tracheostomy [Unknown]

NARRATIVE: CASE EVENT DATE: 20170808
